FAERS Safety Report 5772290-4 (Version None)
Quarter: 2008Q2

REPORT INFORMATION
  Report Type: 
  Country: None (occurrence: None)
  Receive Date: 20080613
  Receipt Date: 20080606
  Transmission Date: 20081010
  Serious: Yes (Hospitalization)
  Sender: FDA-Public Use
  Company Number: PHHY2008PE10335

PATIENT
  Age: 70 Year
  Sex: Female

DRUGS (3)
  1. DIOVAN HCT [Suspect]
     Indication: HYPERTENSION
     Dosage: UNK
     Dates: start: 20060101, end: 20080501
  2. ATENOLOL [Concomitant]
  3. NSAID'S [Concomitant]
     Indication: RHEUMATOID ARTHRITIS

REACTIONS (3)
  - AGRANULOCYTOSIS [None]
  - BONE MARROW FAILURE [None]
  - PNEUMONIA [None]
